FAERS Safety Report 22968394 (Version 3)
Quarter: 2023Q4

REPORT INFORMATION
  Report Type: Report from Study
  Country: FR (occurrence: FR)
  Receive Date: 20230921
  Receipt Date: 20231018
  Transmission Date: 20240110
  Serious: Yes (Death, Life-Threatening, Other)
  Sender: FDA-Public Use
  Company Number: FR-MIRATI-MT2023PM04888

PATIENT
  Age: 80 Year
  Sex: Male
  Weight: 72 kg

DRUGS (3)
  1. KRAZATI [Suspect]
     Active Substance: ADAGRASIB
     Indication: Non-small cell lung cancer metastatic
     Dosage: 600 MG, BID
     Dates: start: 20230825, end: 20230907
  2. VIMPAT [Concomitant]
     Active Substance: LACOSAMIDE
     Indication: Epilepsy
     Dosage: 50 MG, BID
     Route: 048
     Dates: start: 20230801
  3. METHYLPREDNISOLONE [Concomitant]
     Active Substance: METHYLPREDNISOLONE
     Indication: Metastases to central nervous system
     Dosage: 120 MG
     Route: 042
     Dates: start: 20230811

REACTIONS (2)
  - Neoplasm progression [Fatal]
  - Hepatotoxicity [Unknown]

NARRATIVE: CASE EVENT DATE: 20230905
